FAERS Safety Report 8182365-0 (Version None)
Quarter: 2012Q1

REPORT INFORMATION
  Report Type: 
  Country: None (occurrence: None)
  Receive Date: 20120303
  Receipt Date: 20120222
  Transmission Date: 20120608
  Serious: Yes (Other)
  Sender: FDA-Public Use
  Company Number: FI-AMGEN-FINSP2012012514

PATIENT
  Age: 4 Year
  Sex: Male

DRUGS (3)
  1. ENBREL [Suspect]
     Dosage: 12.5 MG, 2X/WEEK
     Dates: start: 20120101
  2. ENBREL [Suspect]
     Indication: JUVENILE ARTHRITIS
     Dosage: UNK
     Dates: start: 20120113, end: 20120101
  3. METHOTREXATE [Concomitant]
     Dosage: 12.5 MG, UNK

REACTIONS (4)
  - DRUG INEFFECTIVE [None]
  - DIZZINESS [None]
  - HEART RATE INCREASED [None]
  - HEART RATE IRREGULAR [None]
